FAERS Safety Report 17620788 (Version 1)
Quarter: 2020Q2

REPORT INFORMATION
  Report Type: Spontaneous
  Country: CN (occurrence: CN)
  Receive Date: 20200403
  Receipt Date: 20200403
  Transmission Date: 20200713
  Serious: Yes (Other)
  Sender: FDA-Public Use
  Company Number: NVSC2020CN090160

PATIENT
  Age: 4 Year
  Sex: Male

DRUGS (7)
  1. CEFUROXIME. [Suspect]
     Active Substance: CEFUROXIME
     Indication: PYODERMA GANGRENOSUM
     Dosage: UNK
     Route: 065
  2. PREDNISOLONE. [Suspect]
     Active Substance: PREDNISOLONE
     Dosage: 2 MG/KG, QD FROM DAY 15
     Route: 048
  3. METHYLPREDNISOLONE. [Suspect]
     Active Substance: METHYLPREDNISOLONE
     Dosage: 1 MG/KG, QD
     Route: 048
  4. PREDNISOLONE. [Suspect]
     Active Substance: PREDNISOLONE
     Indication: PYODERMA GANGRENOSUM
     Dosage: 1 MG/KG, QD
     Route: 048
  5. METHYLPREDNISOLONE. [Suspect]
     Active Substance: METHYLPREDNISOLONE
     Indication: PYODERMA GANGRENOSUM
     Dosage: 1.5 MG/KG, QD
     Route: 048
  6. GAMMA GLOBULIN [Suspect]
     Active Substance: IMMUNE GLOBULIN NOS
     Indication: PYODERMA GANGRENOSUM
     Dosage: UNK
     Route: 042
  7. GAMMA GLOBULIN [Suspect]
     Active Substance: IMMUNE GLOBULIN NOS
     Dosage: 0.4 MG/KG, QD FROM DAY 5
     Route: 042

REACTIONS (7)
  - Pyrexia [Unknown]
  - Malassezia infection [Unknown]
  - Product use in unapproved indication [Unknown]
  - Disease progression [Unknown]
  - Pyoderma gangrenosum [Unknown]
  - Hair growth abnormal [Unknown]
  - Weight increased [Unknown]
